FAERS Safety Report 5729988-3 (Version None)
Quarter: 2008Q2

REPORT INFORMATION
  Report Type: 
  Country: None (occurrence: None)
  Receive Date: 20080507
  Receipt Date: 20080424
  Transmission Date: 20081010
  Serious: Yes (Life-Threatening)
  Sender: FDA-Public Use
  Company Number: JP-BAYER-200810680BYL

PATIENT
  Age: 77 Year
  Sex: Male
  Weight: 50 kg

DRUGS (8)
  1. ADALAT [Suspect]
     Indication: HYPERTENSION
     Dosage: TOTAL DAILY DOSE: 60 MG  UNIT DOSE: 20 MG
     Route: 048
     Dates: start: 20080304, end: 20080313
  2. ADALAT [Suspect]
     Indication: HYPERTENSION
     Route: 048
     Dates: start: 20080314, end: 20080326
  3. ADALAT [Suspect]
     Route: 048
     Dates: start: 20080402, end: 20080404
  4. PERSANTINE [Concomitant]
     Indication: DRUG USE FOR UNKNOWN INDICATION
     Dosage: TOTAL DAILY DOSE: 300 MG  UNIT DOSE: 100 MG
     Route: 048
     Dates: start: 20080304, end: 20080320
  5. AMLODIN [Concomitant]
     Indication: DRUG USE FOR UNKNOWN INDICATION
     Route: 048
  6. HERBESSER [Concomitant]
     Indication: DRUG USE FOR UNKNOWN INDICATION
     Route: 065
  7. LANSOPRAZOLE [Concomitant]
     Indication: GASTRIC ULCER
     Dosage: TOTAL DAILY DOSE: 15 MG  UNIT DOSE: 15 MG
     Route: 048
     Dates: start: 20080304, end: 20080320
  8. PREDONINE [Concomitant]
     Route: 048
     Dates: start: 20080304

REACTIONS (1)
  - AGRANULOCYTOSIS [None]
